FAERS Safety Report 15266458 (Version 1)
Quarter: 2018Q3

REPORT INFORMATION
  Report Type: Spontaneous
  Country: DE (occurrence: DE)
  Receive Date: 20180810
  Receipt Date: 20180810
  Transmission Date: 20181010
  Serious: Yes (Hospitalization, Other)
  Sender: FDA-Public Use
  Company Number: DE-TEVA-2018-DE-938313

PATIENT
  Sex: Female

DRUGS (5)
  1. RITUXIMAB. [Suspect]
     Active Substance: RITUXIMAB
     Indication: B-CELL LYMPHOMA
     Dosage: 620 MILLIGRAM DAILY; 620 MG, QD (620 MG,1 IN 1 D)
     Route: 042
     Dates: start: 20180131, end: 20180131
  2. FILGRASTIM [Suspect]
     Active Substance: FILGRASTIM
     Indication: B-CELL LYMPHOMA
     Dosage: 6 MILLIGRAM DAILY; , QD (6 MG,1 IN 1 D)
     Route: 058
     Dates: start: 20180120, end: 20180120
  3. DOXORUBICIN [Suspect]
     Active Substance: DOXORUBICIN
     Indication: B-CELL LYMPHOMA
     Dosage: 82 MILLIGRAM DAILY; , QD (82 MG,1 IN 1 D)
     Route: 042
     Dates: start: 20180118, end: 20180118
  4. PREDNISONE. [Suspect]
     Active Substance: PREDNISONE
     Indication: B-CELL LYMPHOMA
     Dosage: UNK (100 MG,1X FOR 5 DAYS)
     Route: 048
     Dates: start: 20180117, end: 20180121
  5. CYCLOPHOSPHAMIDE. [Suspect]
     Active Substance: CYCLOPHOSPHAMIDE
     Indication: B-CELL LYMPHOMA
     Dosage: 1240 MILLIGRAM DAILY; , QD (1240 MG,1 IN 1 D)
     Route: 042
     Dates: start: 20180118, end: 20180118

REACTIONS (1)
  - Device dislocation [Unknown]

NARRATIVE: CASE EVENT DATE: 20180201
